FAERS Safety Report 8430588 (Version 2)
Quarter: 2013Q1

REPORT INFORMATION
  Report Type: Spontaneous
  Country: FR (occurrence: FR)
  Receive Date: 20120228
  Receipt Date: 20130325
  Transmission Date: 20140127
  Serious: Yes (Other)
  Sender: FDA-Public Use
  Company Number: FR-ROCHE-1042546

PATIENT
  Age: 39 Year
  Sex: Female

DRUGS (7)
  1. HERCEPTIN [Suspect]
     Indication: BREAST CANCER
     Route: 042
     Dates: start: 20080227
  2. HERCEPTIN [Suspect]
     Dosage: MAINTAINENCE DOSE
     Route: 042
  3. SEROPLEX [Concomitant]
     Route: 065
     Dates: start: 20080822, end: 20080929
  4. FLUOROURACIL [Concomitant]
  5. EPIRUBICIN [Concomitant]
  6. CYCLOPHOSPHAMIDE [Concomitant]
  7. DOCETAXEL [Concomitant]

REACTIONS (1)
  - Dermatomyositis [Recovering/Resolving]
